FAERS Safety Report 9739480 (Version 1)
Quarter: 2013Q4

REPORT INFORMATION
  Report Type: Spontaneous
  Country: US (occurrence: US)
  Receive Date: 20131209
  Receipt Date: 20131209
  Transmission Date: 20140711
  Serious: Yes (Hospitalization, Other)
  Sender: FDA-Public Use
  Company Number: US-009507513-1312USA002316

PATIENT
  Age: 67 Year
  Sex: Female

DRUGS (19)
  1. JANUMET [Suspect]
     Indication: TYPE 2 DIABETES MELLITUS
     Dosage: 1 TABLET TAKEN TWICE DAILY
     Route: 048
     Dates: end: 2013
  2. AMLODIPINE [Concomitant]
  3. ASPIRIN [Concomitant]
  4. ATORVASTATIN [Concomitant]
  5. CARISOPRODOL [Concomitant]
  6. CARVEDILOL [Concomitant]
  7. CYANOCOBALAMIN [Concomitant]
  8. DICLOXACILLIN [Concomitant]
  9. FERROUS SULFATE [Concomitant]
  10. GABAPENTIN [Concomitant]
  11. GLIMEPIRIDE [Concomitant]
  12. ACETAMINOPHEN (+) HYDROCODONE BITARTRATE [Concomitant]
  13. PRINIVIL [Concomitant]
  14. MILNACIPRAN [Concomitant]
  15. GASTROGARD [Concomitant]
  16. POTASSIUM CHLORIDE - USP [Concomitant]
  17. PRAMIPEXOLE [Concomitant]
  18. CALCIUM (UNSPECIFIED) [Concomitant]
  19. TORSEMIDE [Concomitant]

REACTIONS (1)
  - Pancreatitis [Unknown]
